FAERS Safety Report 7850173-3 (Version None)
Quarter: 2011Q4

REPORT INFORMATION
  Report Type: 
  Country: None (occurrence: None)
  Receive Date: 20111026
  Receipt Date: 20111013
  Transmission Date: 20120403
  Serious: Yes (Other)
  Sender: FDA-Public Use
  Company Number: US-BAYER-2011-027676

PATIENT
  Age: 18 Year
  Sex: Female
  Weight: 69.841 kg

DRUGS (9)
  1. YASMIN [Suspect]
     Indication: PREMENSTRUAL SYNDROME
     Dosage: UNK
     Dates: start: 20060101, end: 20070101
  2. VICODIN [Concomitant]
     Indication: PAIN
  3. ZEGERID [Concomitant]
  4. YAZ [Suspect]
     Indication: PREMENSTRUAL SYNDROME
     Dosage: UNK
     Dates: start: 20080501, end: 20090501
  5. LEXAPRO [Concomitant]
  6. YAZ [Suspect]
     Indication: MENSTRUAL CYCLE MANAGEMENT
  7. YASMIN [Suspect]
     Indication: MENSTRUAL CYCLE MANAGEMENT
     Dosage: UNK
     Dates: start: 20100101, end: 20110101
  8. BENTYL [Concomitant]
     Indication: ABDOMINAL PAIN
  9. MULTI-VITAMIN [Concomitant]

REACTIONS (6)
  - CHOLECYSTITIS CHRONIC [None]
  - BILIARY CYST [None]
  - ABDOMINAL PAIN UPPER [None]
  - ABDOMINAL PAIN [None]
  - PROCEDURAL PAIN [None]
  - PAIN [None]
